FAERS Safety Report 24318880 (Version 2)
Quarter: 2024Q4

REPORT INFORMATION
  Report Type: Report from Study
  Country: US (occurrence: US)
  Receive Date: 20240913
  Receipt Date: 20241005
  Transmission Date: 20250114
  Serious: No
  Sender: MERCK
  Company Number: US-009507513-2409USA001283

PATIENT
  Age: 75 Year
  Sex: Male

DRUGS (1)
  1. KEYTRUDA [Suspect]
     Active Substance: PEMBROLIZUMAB
     Indication: Chordoma
     Dosage: UNK
     Dates: start: 202401

REACTIONS (3)
  - Adverse event [Unknown]
  - Off label use [Unknown]
  - Drug effective for unapproved indication [Unknown]

NARRATIVE: CASE EVENT DATE: 20240101
